FAERS Safety Report 6166216-1 (Version None)
Quarter: 2009Q2

REPORT INFORMATION
  Report Type: 
  Country: None (occurrence: None)
  Receive Date: 20090422
  Receipt Date: 20090422
  Transmission Date: 20091009
  Serious: Yes (Other)
  Sender: FDA-Public Use
  Company Number: None

PATIENT

DRUGS (2)
  1. ONDANSETRON [Suspect]
     Indication: NAUSEA
     Dosage: 4 MG
     Dates: start: 20090301, end: 20090414
  2. ONDANSETRON [Suspect]
     Indication: VOMITING
     Dosage: 4 MG
     Dates: start: 20090301, end: 20090414

REACTIONS (3)
  - CHOKING [None]
  - PRODUCT SIZE ISSUE [None]
  - PRODUCT SOLUBILITY ABNORMAL [None]
